FAERS Safety Report 8934091 (Version 1)
Quarter: 2012Q4

REPORT INFORMATION
  Report Type: 
  Country: GB (occurrence: GB)
  Receive Date: 20121129
  Receipt Date: 20121129
  Transmission Date: 20130627
  Serious: Yes (Hospitalization, Other)
  Sender: FDA-Public Use
  Company Number: GB-PFIZER INC-2012296830

PATIENT
  Age: 73 Year
  Sex: Male
  Weight: 89.1 kg

DRUGS (7)
  1. GENOTROPIN [Suspect]
     Dosage: 0.3 mg, 1x/day,7 injections/week
     Route: 058
     Dates: start: 20030220
  2. HYDROCORTISONE [Concomitant]
     Indication: ACTH DECREASED
     Dosage: UNK
     Dates: start: 20021018
  3. SUSTANON [Concomitant]
     Indication: LUTEINISING HORMONE DEFICIENCY
     Dosage: UNK
     Dates: start: 20021018
  4. SUSTANON [Concomitant]
     Indication: FOLLICLE-STIMULATING HORMONE DEFICIENCY
  5. SUSTANON [Concomitant]
     Indication: TESTICULAR HYPOGONADISM
  6. THYROXINE [Concomitant]
     Indication: THYROID DISORDER
     Dosage: UNK
     Dates: start: 20021018
  7. THYROXINE [Concomitant]
     Indication: PRIMARY HYPOTHYROIDISM

REACTIONS (1)
  - Bladder obstruction [Unknown]
